FAERS Safety Report 13318402 (Version 1)
Quarter: 2017Q1

REPORT INFORMATION
  Report Type: Spontaneous
  Country: DE (occurrence: DE)
  Receive Date: 20170310
  Receipt Date: 20170310
  Transmission Date: 20170428
  Serious: Yes (Hospitalization)
  Sender: FDA-Public Use
  Company Number: US-ASTRAZENECA-2017SE25139

PATIENT
  Age: 136 Day
  Sex: Female
  Weight: 1.4 kg

DRUGS (2)
  1. SYNAGIS [Suspect]
     Active Substance: PALIVIZUMAB
     Indication: PREMATURE BABY
     Dosage: 15.0MG/KG UNKNOWN
     Route: 030
     Dates: start: 20170201
  2. SYNAGIS [Suspect]
     Active Substance: PALIVIZUMAB
     Indication: PREMATURE BABY
     Dosage: 15.0MG/KG UNKNOWN
     Route: 030
     Dates: start: 20161117, end: 20161221

REACTIONS (3)
  - Nasopharyngitis [Recovering/Resolving]
  - Respiratory syncytial virus test positive [Recovering/Resolving]
  - Apnoea [Recovering/Resolving]

NARRATIVE: CASE EVENT DATE: 20170105
